FAERS Safety Report 24665445 (Version 2)
Quarter: 2024Q4

REPORT INFORMATION
  Report Type: Spontaneous
  Country: US (occurrence: US)
  Receive Date: 20241126
  Receipt Date: 20241203
  Transmission Date: 20250115
  Serious: Yes (Hospitalization, Other)
  Sender: TORRENT PHARMA INC.
  Company Number: US-TORRENT-00013856

PATIENT
  Age: 62 Year
  Sex: Male

DRUGS (3)
  1. ERYTHROMYCIN [Interacting]
     Active Substance: ERYTHROMYCIN
     Indication: Osteomyelitis
     Dosage: 500MG ERYTHROMYCIN 4 TIMES DAILY
     Route: 065
  2. TACROLIMUS [Interacting]
     Active Substance: TACROLIMUS
     Indication: Product used for unknown indication
     Dosage: UNKNOWN
     Route: 065
  3. DOXYCYCLINE [Concomitant]
     Active Substance: DOXYCYCLINE
     Indication: Osteomyelitis
     Dosage: DOXYCYCLINE 100 MG TWICE DAILY
     Route: 065

REACTIONS (6)
  - Diarrhoea [Unknown]
  - Drug interaction [Recovering/Resolving]
  - Crystal nephropathy [Recovering/Resolving]
  - Kidney fibrosis [Recovering/Resolving]
  - Acute kidney injury [Recovering/Resolving]
  - Condition aggravated [Recovering/Resolving]
